FAERS Safety Report 25570448 (Version 2)
Quarter: 2025Q4

REPORT INFORMATION
  Report Type: Spontaneous
  Country: US (occurrence: US)
  Receive Date: 20250717
  Receipt Date: 20251223
  Transmission Date: 20260117
  Serious: Yes (Other)
  Sender: BRISTOL-MYERS SQUIBB COMPANY
  Company Number: US-BRISTOL-MYERS SQUIBB COMPANY-2025-098299

PATIENT
  Age: 32 Year
  Sex: Male

DRUGS (1)
  1. COBENFY [Suspect]
     Active Substance: TROSPIUM CHLORIDE\XANOMELINE
     Indication: Schizophrenia
     Dosage: 2 DAYS OF 50/20 MG AND 5 DAYS ON 100/20 MG BY THE END OF THE WEEK?DOSE AND STRENGTH: 50MG/20MG, 100MG/20MG, 125MG/30MG
     Route: 048

REACTIONS (1)
  - Urinary retention [Unknown]
